FAERS Safety Report 5492691-1 (Version None)
Quarter: 2007Q4

REPORT INFORMATION
  Report Type: 
  Country: None (occurrence: None)
  Receive Date: 20071016
  Receipt Date: 20071008
  Transmission Date: 20080405
  Serious: Yes (Other)
  Sender: FDA-Public Use
  Company Number: CHPA2007US10504

PATIENT
  Age: 2 Year
  Sex: Female
  Weight: 10.9 kg

DRUGS (1)
  1. TRIAMINIC INFANT DECONGESTANT COUGH (NCH) (DEXTROMETHORPHAN HYDROBROMI [Suspect]
     Dosage: 1 DF, ONCE/SINGLE, 2 DF, BID;

REACTIONS (1)
  - FEBRILE CONVULSION [None]
